FAERS Safety Report 5556347-9 (Version None)
Quarter: 2007Q4

REPORT INFORMATION
  Report Type: 
  Country: None (occurrence: None)
  Receive Date: 20071213
  Receipt Date: 20070907
  Transmission Date: 20080405
  Serious: No
  Sender: FDA-Public Use
  Company Number: US-AMGEN-KDL239246

PATIENT
  Sex: Female
  Weight: 74.5 kg

DRUGS (5)
  1. ENBREL [Suspect]
     Indication: RHEUMATOID ARTHRITIS
     Route: 058
     Dates: start: 20010101
  2. LISINOPRIL [Concomitant]
  3. NASONEX [Concomitant]
  4. CLARITIN [Concomitant]
  5. LODINE [Concomitant]

REACTIONS (8)
  - COLONIC POLYP [None]
  - CYSTITIS [None]
  - GASTROINTESTINAL INFECTION [None]
  - HAEMORRHOIDS [None]
  - HELICOBACTER GASTRITIS [None]
  - HELICOBACTER INFECTION [None]
  - MELANOSIS COLI [None]
  - PHARYNGITIS [None]
